FAERS Safety Report 24082866 (Version 1)
Quarter: 2024Q3

REPORT INFORMATION
  Report Type: Spontaneous
  Country: NL (occurrence: NL)
  Receive Date: 20240712
  Receipt Date: 20240712
  Transmission Date: 20241016
  Serious: Yes (Hospitalization, Other)
  Sender: GILEAD
  Company Number: NL-GILEAD-2024-0680125

PATIENT
  Age: 68 Year
  Sex: Male

DRUGS (3)
  1. VIREAD [Suspect]
     Active Substance: TENOFOVIR DISOPROXIL FUMARATE
     Indication: Hepatitis B
     Dosage: UNK
     Route: 065
  2. ACETYLCYSTEINE [Concomitant]
     Active Substance: ACETYLCYSTEINE
  3. IMMUNOGLOBULINS [Concomitant]

REACTIONS (2)
  - Acute hepatic failure [Not Recovered/Not Resolved]
  - Hepatitis B reactivation [Not Recovered/Not Resolved]
